FAERS Safety Report 5485758-5 (Version None)
Quarter: 2007Q4

REPORT INFORMATION
  Report Type: 
  Country: None (occurrence: None)
  Receive Date: 20071015
  Receipt Date: 20071003
  Transmission Date: 20080405
  Serious: Yes (Other)
  Sender: FDA-Public Use
  Company Number: AU-ROCHE-519404

PATIENT
  Sex: Female

DRUGS (1)
  1. ISOTRETINOIN [Suspect]
     Indication: ACNE
     Dosage: FORMULATION: PILL
     Route: 065
     Dates: start: 20070305, end: 20070911

REACTIONS (9)
  - DEPRESSION [None]
  - DYSPAREUNIA [None]
  - EPISTAXIS [None]
  - HEADACHE [None]
  - INSOMNIA [None]
  - LIBIDO DECREASED [None]
  - LIP DRY [None]
  - MOOD ALTERED [None]
  - NAUSEA [None]
